FAERS Safety Report 13772496 (Version 3)
Quarter: 2017Q3

REPORT INFORMATION
  Report Type: Spontaneous
  Country: US (occurrence: US)
  Receive Date: 20170720
  Receipt Date: 20170918
  Transmission Date: 20171127
  Serious: No
  Sender: FDA-Public Use
  Company Number: US-GLAXOSMITHKLINE-US2017GSK111022

PATIENT
  Sex: Female
  Weight: 59 kg

DRUGS (3)
  1. BREO ELLIPTA [Suspect]
     Active Substance: FLUTICASONE FUROATE\VILANTEROL TRIFENATATE
     Indication: DYSPNOEA
     Dosage: UNK
     Dates: start: 2016
  2. TANZEUM [Suspect]
     Active Substance: ALBIGLUTIDE
     Indication: DIABETES MELLITUS
     Dosage: 50 MG, UNK
     Dates: start: 2016
  3. VENTOLIN HFA [Suspect]
     Active Substance: ALBUTEROL SULFATE
     Indication: BRONCHITIS

REACTIONS (8)
  - Drug ineffective [Unknown]
  - Wheezing [Unknown]
  - Drug dose omission [Unknown]
  - Intentional product misuse [Unknown]
  - Cough [Unknown]
  - Insomnia [Unknown]
  - Asthma [Unknown]
  - Dyspnoea [Unknown]
